FAERS Safety Report 21081846 (Version 1)
Quarter: 2022Q3

REPORT INFORMATION
  Report Type: Spontaneous
  Country: US (occurrence: None)
  Receive Date: 20220714
  Receipt Date: 20220714
  Transmission Date: 20221026
  Serious: Yes (Hospitalization)
  Sender: FDA-Public Use
  Company Number: None

PATIENT
  Age: 22 Year
  Sex: Female
  Weight: 86.2 kg

DRUGS (6)
  1. CYCLOPHOSPHAMIDE [Suspect]
     Active Substance: CYCLOPHOSPHAMIDE
     Dates: end: 20220418
  2. CYTARABINE [Suspect]
     Active Substance: CYTARABINE
     Dates: end: 20220428
  3. MERCAPTOPURINE [Suspect]
     Active Substance: MERCAPTOPURINE
     Dates: end: 20220501
  4. METHOTREXATE [Suspect]
     Active Substance: METHOTREXATE
     Dates: end: 20220426
  5. ONCASPAR [Suspect]
     Active Substance: PEGASPARGASE
     Dates: end: 20220502
  6. VINCRISTINE SULFATE [Suspect]
     Active Substance: VINCRISTINE SULFATE
     Dates: end: 20220502

REACTIONS (15)
  - Abdominal pain [None]
  - Nausea [None]
  - Vomiting [None]
  - Haematemesis [None]
  - Fatigue [None]
  - Dizziness [None]
  - Headache [None]
  - Photophobia [None]
  - Constipation [None]
  - Pancytopenia [None]
  - Hyperglycaemia [None]
  - Haematuria [None]
  - Glycosuria [None]
  - Bacteraemia [None]
  - Lipase increased [None]

NARRATIVE: CASE EVENT DATE: 20220505
